FAERS Safety Report 5954275-8 (Version None)
Quarter: 2008Q4

REPORT INFORMATION
  Report Type: 
  Country: None (occurrence: None)
  Receive Date: 20081113
  Receipt Date: 20081113
  Transmission Date: 20090506
  Serious: Yes (Life-Threatening)
  Sender: FDA-Public Use
  Company Number: None

PATIENT
  Weight: 77.1115 kg

DRUGS (2)
  1. PROAIR HFA [Suspect]
     Indication: ASTHMA
     Dates: start: 20081112, end: 20081112
  2. ALBUTEROL CFC INHALER [Concomitant]

REACTIONS (2)
  - DRUG INEFFECTIVE [None]
  - PRODUCT QUALITY ISSUE [None]
